FAERS Safety Report 9473257 (Version 1)
Quarter: 2013Q3

REPORT INFORMATION
  Report Type: Report from Study
  Country: BR (occurrence: BR)
  Receive Date: 20130823
  Receipt Date: 20130823
  Transmission Date: 20140515
  Serious: Yes (Other)
  Sender: FDA-Public Use
  Company Number: BR-ABBOTT-13P-020-1135134-00

PATIENT
  Age: 32 Year
  Sex: Female
  Weight: 52 kg

DRUGS (2)
  1. HUMIRA [Suspect]
     Indication: PSORIASIS
     Dosage: WEEK 0
     Route: 058
     Dates: start: 20130111
  2. HUMIRA [Suspect]
     Route: 058
     Dates: end: 201305

REACTIONS (4)
  - Lymph node tuberculosis [Recovering/Resolving]
  - Synovial cyst [Recovering/Resolving]
  - Weight decreased [Recovering/Resolving]
  - Sinusitis [Recovering/Resolving]
